FAERS Safety Report 18076608 (Version 1)
Quarter: 2020Q3

REPORT INFORMATION
  Report Type: Spontaneous
  Country: CN (occurrence: CN)
  Receive Date: 20200727
  Receipt Date: 20200727
  Transmission Date: 20201103
  Serious: Yes (Other)
  Sender: FDA-Public Use
  Company Number: NVSC2020CN207808

PATIENT
  Age: 71 Year
  Sex: Female
  Weight: 60 kg

DRUGS (1)
  1. ACLASTA [Suspect]
     Active Substance: ZOLEDRONIC ACID
     Indication: OSTEOPOROSIS
     Dosage: 5 MG, QD
     Route: 041
     Dates: start: 20200626, end: 20200626

REACTIONS (2)
  - Pyrexia [Recovering/Resolving]
  - Temperature intolerance [Recovering/Resolving]

NARRATIVE: CASE EVENT DATE: 20200627
